FAERS Safety Report 24288485 (Version 1)
Quarter: 2024Q3

REPORT INFORMATION
  Report Type: Report from Study
  Country: DE (occurrence: DE)
  Receive Date: 20240906
  Receipt Date: 20240906
  Transmission Date: 20241017
  Serious: Yes (Other)
  Sender: ABBVIE
  Company Number: DE-ABBVIE-5903187

PATIENT
  Age: 55 Year
  Sex: Male

DRUGS (1)
  1. RINVOQ [Suspect]
     Active Substance: UPADACITINIB
     Indication: Axial spondyloarthritis
     Route: 048
     Dates: start: 20240229

REACTIONS (1)
  - Depressed fracture [Recovered/Resolved]

NARRATIVE: CASE EVENT DATE: 20240715
